FAERS Safety Report 5069846-3 (Version None)
Quarter: 2006Q3

REPORT INFORMATION
  Report Type: 
  Country: None (occurrence: None)
  Receive Date: 20060731
  Receipt Date: 20060719
  Transmission Date: 20061208
  Serious: Yes (Hospitalization)
  Sender: FDA-Public Use
  Company Number: 2006089978

PATIENT
  Age: 57 Year
  Sex: Male

DRUGS (3)
  1. VIRACEPT [Suspect]
     Indication: HIV INFECTION
     Dosage: 2500 MG, ORAL
     Route: 048
     Dates: start: 20050401
  2. LAMIVUDINE [Suspect]
     Indication: HIV INFECTION
     Dosage: 300 MG, ORAL
     Route: 048
     Dates: start: 20040917
  3. STAVUDINE [Suspect]
     Indication: HIV INFECTION
     Dosage: 80 MG ORAL
     Route: 048
     Dates: start: 20041126

REACTIONS (4)
  - HEPATIC FUNCTION ABNORMAL [None]
  - HEPATITIS C [None]
  - IMMUNE RECONSTITUTION SYNDROME [None]
  - KAPOSI'S SARCOMA [None]
